FAERS Safety Report 24075468 (Version 1)
Quarter: 2024Q3

REPORT INFORMATION
  Report Type: Spontaneous
  Country: PT (occurrence: None)
  Receive Date: 20240710
  Receipt Date: 20240710
  Transmission Date: 20241017
  Serious: Yes (Life-Threatening, Hospitalization)
  Sender: ASTRAZENECA
  Company Number: 2024A156807

PATIENT
  Age: 80 Year
  Sex: Male

DRUGS (17)
  1. QUETIAPINE [Suspect]
     Active Substance: QUETIAPINE
     Dosage: 100.0MG UNKNOWN
     Route: 048
  2. HERBALS [Suspect]
     Active Substance: HERBALS
  3. TRAZODONE [Suspect]
     Active Substance: TRAZODONE HYDROCHLORIDE
  4. BUPROPION [Suspect]
     Active Substance: BUPROPION
  5. LORAZEPAM [Suspect]
     Active Substance: LORAZEPAM
  6. FUROSEMIDE [Suspect]
     Active Substance: FUROSEMIDE
  7. CANDESARTAN [Concomitant]
     Active Substance: CANDESARTAN
  8. CARALLUMA FIMBRIATA [Concomitant]
  9. AMLODIPINE [Concomitant]
     Active Substance: AMLODIPINE BESYLATE
  10. METFORMIN [Concomitant]
     Active Substance: METFORMIN HYDROCHLORIDE
  11. METFORMIN [Concomitant]
     Active Substance: METFORMIN HYDROCHLORIDE
  12. LIRAGLUTIDE [Concomitant]
     Active Substance: LIRAGLUTIDE
  13. ASPIRIN [Concomitant]
     Active Substance: ASPIRIN
  14. ATORVASTATIN [Concomitant]
     Active Substance: ATORVASTATIN
  15. LEVOTHYROXINE [Concomitant]
     Active Substance: LEVOTHYROXINE\LEVOTHYROXINE SODIUM
  16. PHENOLPHTHALEIN [Concomitant]
     Active Substance: PHENOLPHTHALEIN
  17. CHLORDIAZEPOXIDE [Concomitant]
     Active Substance: CHLORDIAZEPOXIDE

REACTIONS (3)
  - Acute kidney injury [Unknown]
  - Confusional state [Unknown]
  - Rhabdomyolysis [Unknown]
